FAERS Safety Report 23754001 (Version 1)
Quarter: 2024Q2

REPORT INFORMATION
  Report Type: Other
  Country: GB (occurrence: GB)
  Receive Date: 20240417
  Receipt Date: 20240417
  Transmission Date: 20240716
  Serious: Yes (Other)
  Sender: FDA-Public Use
  Company Number: None

PATIENT
  Age: 58 Year
  Sex: Female
  Weight: 65 kg

DRUGS (2)
  1. HYDROCORTISONE [Suspect]
     Active Substance: HYDROCORTISONE
     Indication: Glucocorticoid deficiency
     Dosage: 20 MILLIGRAM QD, TABLET (10MG IN MORNING, 5MG LUNCHTIME, 5MG EARLY EVENING)
     Route: 065
     Dates: start: 20240314
  2. DARATUMUMAB [Concomitant]
     Active Substance: DARATUMUMAB
     Indication: Primary amyloidosis
     Dosage: UNK
     Route: 065
     Dates: start: 20210410

REACTIONS (1)
  - Diarrhoea [Recovered/Resolved]

NARRATIVE: CASE EVENT DATE: 20240318
